FAERS Safety Report 7102696 (Version 6)
Quarter: 2013Q4

REPORT INFORMATION
  Report Type: Report from Study
  Country: US (occurrence: US)
  Receive Date: 20090901
  Receipt Date: 20131009
  Transmission Date: 20140711
  Serious: Yes (Death, Hospitalization)
  Sender: FDA-Public Use
  Company Number: PHHO2009US10571

PATIENT
  Age: 73 Year
  Sex: Female

DRUGS (4)
  1. AFINITOR [Suspect]
     Indication: BREAST CANCER
     Dosage: 10 MG, QD
     Route: 048
     Dates: start: 20090811
  2. DECADRON [Concomitant]
  3. ATENOLOL [Concomitant]
  4. MORPHIN HCL [Concomitant]

REACTIONS (6)
  - Febrile neutropenia [Fatal]
  - Sepsis [Fatal]
  - Muscular weakness [Unknown]
  - Fall [Unknown]
  - Atrial fibrillation [Unknown]
  - Sinus tachycardia [Unknown]
